FAERS Safety Report 25685112 (Version 2)
Quarter: 2025Q3

REPORT INFORMATION
  Report Type: Spontaneous
  Country: SG (occurrence: SG)
  Receive Date: 20250815
  Receipt Date: 20250821
  Transmission Date: 20251021
  Serious: Yes (Life-Threatening, Hospitalization)
  Sender: MYLAN
  Company Number: SG-MYLANLABS-2025M1069348

PATIENT
  Age: 18 Year
  Sex: Female

DRUGS (4)
  1. SERTRALINE [Suspect]
     Active Substance: SERTRALINE HYDROCHLORIDE
     Indication: Anxiety disorder
  2. VALPROATE [Suspect]
     Active Substance: VALPROIC ACID
     Indication: Anxiety disorder
  3. ESTAZOLAM [Suspect]
     Active Substance: ESTAZOLAM
     Indication: Anxiety disorder
  4. QUETIAPINE [Suspect]
     Active Substance: QUETIAPINE
     Indication: Anxiety disorder

REACTIONS (3)
  - Hyperammonaemic encephalopathy [Recovered/Resolved]
  - Intentional overdose [Recovered/Resolved]
  - Suicide attempt [Recovered/Resolved]
